FAERS Safety Report 13417036 (Version 3)
Quarter: 2017Q2

REPORT INFORMATION
  Report Type: Spontaneous
  Country: US (occurrence: US)
  Receive Date: 20170406
  Receipt Date: 20170517
  Transmission Date: 20170830
  Serious: No
  Sender: FDA-Public Use
  Company Number: US-009507513-1704USA002256

PATIENT
  Age: 48 Year
  Sex: Female
  Weight: 54.88 kg

DRUGS (2)
  1. BELSOMRA [Suspect]
     Active Substance: SUVOREXANT
     Indication: INSOMNIA
  2. BELSOMRA [Suspect]
     Active Substance: SUVOREXANT
     Indication: POOR QUALITY SLEEP
     Dosage: 10 MG, QD, IN THE PM
     Route: 048
     Dates: start: 20170330, end: 20170330

REACTIONS (5)
  - Feeling jittery [Unknown]
  - Respiratory rate increased [Unknown]
  - Anxiety [Unknown]
  - Akathisia [Recovered/Resolved]
  - Insomnia [Recovered/Resolved]

NARRATIVE: CASE EVENT DATE: 20170330
